FAERS Safety Report 8542446-6 (Version None)
Quarter: 2012Q3

REPORT INFORMATION
  Report Type: 
  Country: None (occurrence: None)
  Receive Date: 20120726
  Receipt Date: 20111107
  Transmission Date: 20120928
  Serious: Yes (Other)
  Sender: FDA-Public Use
  Company Number: US-ASTRAZENECA-2007UW12814

PATIENT
  Age: 639 Month
  Sex: Male

DRUGS (12)
  1. SEROQUEL [Suspect]
     Indication: SLEEP DISORDER
     Dosage: 100-200 MG
     Route: 048
     Dates: start: 20030628, end: 20040112
  2. SEROQUEL [Suspect]
     Dosage: 100-200 MG
     Route: 048
     Dates: start: 20030715
  3. RISPERDAL [Suspect]
     Route: 065
     Dates: start: 20030120, end: 20040414
  4. TRAZODONE HYDROCHLORIDE [Concomitant]
     Dates: start: 20030715
  5. SEROQUEL [Suspect]
     Dosage: 100-200 MG
     Route: 048
     Dates: start: 20030715
  6. SEROQUEL [Suspect]
     Indication: BIPOLAR DISORDER
     Dosage: 100-200 MG
     Route: 048
     Dates: start: 20030628, end: 20040112
  7. VASOTEC [Concomitant]
     Route: 048
     Dates: start: 20060925
  8. LEXAPRO [Concomitant]
     Route: 048
     Dates: start: 20060925
  9. WELLBUTRIN [Concomitant]
     Dosage: 150-300 MG
     Dates: start: 20030602
  10. MIRTAZAPINE [Concomitant]
     Dates: start: 20030715
  11. SEROQUEL [Suspect]
     Indication: AFFECTIVE DISORDER
     Dosage: 100-200 MG
     Route: 048
     Dates: start: 20030628, end: 20040112
  12. SEROQUEL [Suspect]
     Dosage: 100-200 MG
     Route: 048
     Dates: start: 20030715

REACTIONS (4)
  - TARDIVE DYSKINESIA [None]
  - ERECTILE DYSFUNCTION [None]
  - DIABETES MELLITUS [None]
  - DIABETES MELLITUS INADEQUATE CONTROL [None]
